FAERS Safety Report 21291434 (Version 4)
Quarter: 2023Q4

REPORT INFORMATION
  Report Type: Spontaneous
  Country: US (occurrence: US)
  Receive Date: 20220903
  Receipt Date: 20231116
  Transmission Date: 20240109
  Serious: No
  Sender: FDA-Public Use
  Company Number: US-TEVA-2022-US-2019386

PATIENT
  Age: 87 Year
  Sex: Male

DRUGS (1)
  1. QVAR REDIHALER [Suspect]
     Active Substance: BECLOMETHASONE DIPROPIONATE
     Indication: Chronic obstructive pulmonary disease
     Route: 065

REACTIONS (5)
  - Asthenia [Unknown]
  - Product use in unapproved indication [Unknown]
  - Product dose omission issue [Unknown]
  - Product use issue [Unknown]
  - Product prescribing error [Unknown]

NARRATIVE: CASE EVENT DATE: 20230701
